FAERS Safety Report 5714152-4 (Version None)
Quarter: 2008Q2

REPORT INFORMATION
  Report Type: 
  Country: None (occurrence: None)
  Receive Date: 20080423
  Receipt Date: 20070511
  Transmission Date: 20081010
  Serious: No
  Sender: FDA-Public Use
  Company Number: US-KINGPHARMUSA00001-K200700586

PATIENT

DRUGS (3)
  1. SKELAXIN [Suspect]
     Indication: PERIARTHRITIS
     Dosage: 400 MG, QD
     Route: 048
     Dates: start: 20070301, end: 20070401
  2. THEO-DUR [Concomitant]
     Indication: ASTHMA
     Dosage: UNK, QD
     Route: 048
  3. TYLENOL (CAPLET) [Concomitant]
     Indication: MUSCULOSKELETAL PAIN
     Dosage: UNK, PRN
     Route: 048

REACTIONS (1)
  - DYSPEPSIA [None]
